FAERS Safety Report 8757053 (Version 2)
Quarter: 2012Q4

REPORT INFORMATION
  Report Type: 
  Country: US (occurrence: US)
  Receive Date: 20120828
  Receipt Date: 20120912
  Transmission Date: 20130627
  Serious: Yes (Other)
  Sender: FDA-Public Use
  Company Number: US-PFIZER INC-2012207980

PATIENT
  Age: 44 Year

DRUGS (16)
  1. B12 [Concomitant]
     Dosage: UNK
  2. VIT E [Concomitant]
     Dosage: UNK
  3. VALIUM [Concomitant]
     Dosage: UNK
  4. CELEXA [Concomitant]
     Dosage: 40 mg, (1 1/2 prn)
  5. ASA [Concomitant]
     Dosage: UNK, 2x/day
  6. GEMFIBROZIL [Concomitant]
     Dosage: UNK, 2x/day
  7. MYCOLOG II [Concomitant]
     Dosage: UNK
  8. BACTROBAN [Concomitant]
     Dosage: UNK
  9. LEVITRA [Concomitant]
     Dosage: UNK, as needed
  10. LOPID [Suspect]
     Dosage: 600 mg, 2x/day
     Route: 048
  11. OXYCODONE [Concomitant]
     Dosage: UNK, (30 X 5)
  12. SOMA [Concomitant]
     Dosage: UNK, 4x/day
  13. MS CONTIN [Concomitant]
     Dosage: 15 mg, hs
  14. GABAPENTIN [Concomitant]
     Dosage: UNK, 3x/day
  15. MOBIC [Concomitant]
     Dosage: UNK, am
  16. M.V.I. [Concomitant]
     Dosage: UNK

REACTIONS (13)
  - Major depression [Unknown]
  - Renal failure chronic [Unknown]
  - Intervertebral disc disorder [Unknown]
  - Spinal disorder [Unknown]
  - Metabolic syndrome [Unknown]
  - Fibromyalgia [Unknown]
  - Haemorrhoids [Unknown]
  - Hiatus hernia [Unknown]
  - Back pain [Unknown]
  - Neuropathy peripheral [Unknown]
  - Glycosylated haemoglobin increased [Unknown]
  - Blood creatine phosphokinase abnormal [Unknown]
  - Synovial cyst [Unknown]
